FAERS Safety Report 6564656-X (Version None)
Quarter: 2010Q1

REPORT INFORMATION
  Report Type: 
  Country: None (occurrence: None)
  Receive Date: 20100201
  Receipt Date: 20100127
  Transmission Date: 20100710
  Serious: Yes (Hospitalization)
  Sender: FDA-Public Use
  Company Number: FR-SANOFI-AVENTIS-2010SA004818

PATIENT
  Age: 84 Year
  Sex: Male

DRUGS (11)
  1. PLAVIX [Interacting]
     Indication: ATHEROSCLEROSIS PROPHYLAXIS
     Route: 048
  2. CORDARONE [Interacting]
     Indication: ATRIAL FIBRILLATION
     Route: 048
  3. KARDEGIC [Interacting]
     Indication: DRUG USE FOR UNKNOWN INDICATION
     Route: 048
  4. PREVISCAN [Suspect]
     Indication: MYOCARDIAL INFARCTION
     Route: 048
     Dates: end: 20081020
  5. PREVISCAN [Suspect]
     Route: 048
     Dates: start: 20081001
  6. ALLOPURINOL [Suspect]
     Indication: HYPERURICAEMIA
     Route: 048
  7. CARDENSIEL [Concomitant]
     Route: 048
  8. COVERSYL /FRA/ [Concomitant]
     Route: 048
  9. LASILIX [Concomitant]
  10. INIPOMP [Concomitant]
     Indication: DRUG USE FOR UNKNOWN INDICATION
     Route: 048
  11. NEURONTIN [Concomitant]
     Indication: DRUG USE FOR UNKNOWN INDICATION
     Route: 048

REACTIONS (1)
  - INTERNATIONAL NORMALISED RATIO INCREASED [None]
